FAERS Safety Report 9094448 (Version 1)
Quarter: 2013Q1

REPORT INFORMATION
  Report Type: Spontaneous
  Country: US (occurrence: US)
  Receive Date: 20130219
  Receipt Date: 20130219
  Transmission Date: 20140127
  Serious: No
  Sender: FDA-Public Use
  Company Number: US-SANOFI-AVENTIS-2012SA091111

PATIENT
  Sex: 0

DRUGS (4)
  1. DIABETA [Suspect]
  2. METFORMIN [Concomitant]
  3. LEVOFLOXACIN [Concomitant]
  4. COUGH SYRUP [Concomitant]

REACTIONS (4)
  - Blood glucose abnormal [Not Recovered/Not Resolved]
  - Nausea [Not Recovered/Not Resolved]
  - Photophobia [Not Recovered/Not Resolved]
  - Gait disturbance [Not Recovered/Not Resolved]
